FAERS Safety Report 18838372 (Version 1)
Quarter: 2021Q1

REPORT INFORMATION
  Report Type: Spontaneous
  Country: US (occurrence: US)
  Receive Date: 20210203
  Receipt Date: 20210203
  Transmission Date: 20210419
  Serious: Yes (Other)
  Sender: FDA-Public Use
  Company Number: NVSC2021US019231

PATIENT

DRUGS (1)
  1. ENTRESTO [Suspect]
     Active Substance: SACUBITRIL\VALSARTAN
     Indication: CARDIAC FAILURE CONGESTIVE
     Dosage: 50 MG (24/26 MG)
     Route: 065

REACTIONS (5)
  - Renal impairment [Unknown]
  - Cardiac failure [Unknown]
  - Drug ineffective [Unknown]
  - Hypotension [Unknown]
  - Cardiac failure congestive [Not Recovered/Not Resolved]
